FAERS Safety Report 9114453 (Version 1)
Quarter: 2013Q1

REPORT INFORMATION
  Report Type: Spontaneous
  Country: IT (occurrence: IT)
  Receive Date: 20130208
  Receipt Date: 20130208
  Transmission Date: 20140127
  Serious: Yes (Other)
  Sender: FDA-Public Use
  Company Number: IT-PFIZER INC-2012309119

PATIENT
  Age: 72 Year
  Sex: Male

DRUGS (3)
  1. CISPLATINO [Suspect]
     Indication: LUNG NEOPLASM MALIGNANT
     Dosage: 75MG/MQ,CYCLICAL
     Route: 042
     Dates: start: 20120709, end: 20121203
  2. ONDANSETRON HYDROCHLORIDE [Concomitant]
     Dosage: UNK
     Route: 042
  3. DEXAMETHASONE SODIUM PHOSPHATE [Concomitant]
     Dosage: UNK

REACTIONS (5)
  - Dyspnoea [Recovered/Resolved]
  - Erythema [Recovered/Resolved]
  - Abdominal pain upper [Recovered/Resolved]
  - Pruritus [Recovered/Resolved]
  - Flushing [Recovered/Resolved]
